FAERS Safety Report 15767544 (Version 2)
Quarter: 2019Q1

REPORT INFORMATION
  Report Type: Spontaneous
  Country: DE (occurrence: DE)
  Receive Date: 20181227
  Receipt Date: 20190104
  Transmission Date: 20190417
  Serious: Yes (Hospitalization, Disabling, Other)
  Sender: FDA-Public Use
  Company Number: DE-ASTRAZENECA-2018SF69105

PATIENT
  Age: 27136 Day
  Sex: Female
  Weight: 70 kg

DRUGS (5)
  1. BISOPROLOL [Concomitant]
     Active Substance: BISOPROLOL
  2. OSIMERTINIB. [Suspect]
     Active Substance: OSIMERTINIB
     Indication: NON-SMALL CELL LUNG CANCER
     Dosage: 80.0MG UNKNOWN
     Route: 048
     Dates: start: 20171107, end: 20181029
  3. SPIRONOLACTON/BISOPROLOL/TORASEMID [Concomitant]
     Indication: CARDIAC FAILURE
     Dosage: 50 MG/10 MG/5 MG
     Route: 048
  4. TOREM [Concomitant]
     Active Substance: TORSEMIDE
  5. SPIRONOLACTON/BISOPROLOL/TORASEMID [Concomitant]
     Indication: ATRIAL FIBRILLATION
     Dosage: 50 MG/10 MG/5 MG
     Route: 048

REACTIONS (4)
  - Pleural effusion [Unknown]
  - Pulmonary hypertension [Unknown]
  - Cardiac failure chronic [Recovered/Resolved]
  - Cardiomyopathy [Unknown]

NARRATIVE: CASE EVENT DATE: 20180821
